FAERS Safety Report 9818864 (Version 2)
Quarter: 2014Q3

REPORT INFORMATION
  Report Type: Spontaneous
  Country: US (occurrence: US)
  Receive Date: 20140115
  Receipt Date: 20140819
  Transmission Date: 20150326
  Serious: Yes (Death, Other)
  Sender: FDA-Public Use
  Company Number: US-009507513-1401USA004149

PATIENT
  Sex: Female
  Weight: 80.27 kg

DRUGS (1)
  1. NUVARING [Suspect]
     Active Substance: ETHINYL ESTRADIOL\ETONOGESTREL
     Route: 067

REACTIONS (12)
  - Pulmonary embolism [Fatal]
  - Headache [Unknown]
  - Paraesthesia [Unknown]
  - Anaemia [Unknown]
  - Gastrooesophageal reflux disease [Unknown]
  - Spondylitis [Unknown]
  - Depression [Unknown]
  - Cardiac murmur [Unknown]
  - Deafness unilateral [Unknown]
  - Weight increased [Unknown]
  - Muscular weakness [Unknown]
  - Anxiety [Unknown]

NARRATIVE: CASE EVENT DATE: 20080817
